FAERS Safety Report 5905041-0 (Version None)
Quarter: 2008Q4

REPORT INFORMATION
  Report Type: 
  Country: None (occurrence: None)
  Receive Date: 20081001
  Receipt Date: 20080919
  Transmission Date: 20090506
  Serious: Yes (Hospitalization)
  Sender: FDA-Public Use
  Company Number: FR-AMGEN-UK309437

PATIENT
  Sex: Female

DRUGS (1)
  1. ROMIPLOSTIM [Suspect]
     Indication: MYELODYSPLASTIC SYNDROME

REACTIONS (1)
  - ARTERIOSPASM CORONARY [None]
